FAERS Safety Report 18597125 (Version 1)
Quarter: 2020Q4

REPORT INFORMATION
  Report Type: Spontaneous
  Country: US (occurrence: US)
  Receive Date: 20201209
  Receipt Date: 20201209
  Transmission Date: 20210114
  Serious: No
  Sender: FDA-Public Use
  Company Number: US-BAYER-2020-256391

PATIENT
  Age: 73 Year
  Sex: Female

DRUGS (2)
  1. STIVARGA [Suspect]
     Active Substance: REGORAFENIB
     Indication: METASTASES TO BILIARY TRACT
  2. STIVARGA [Suspect]
     Active Substance: REGORAFENIB
     Indication: METASTASES TO LIVER
     Dosage: 160 MG DAILY FOR 21 DAYS ON, 7 DAYS OFF
     Dates: start: 20201116

REACTIONS (5)
  - Rash pruritic [Not Recovered/Not Resolved]
  - Tachycardia [Not Recovered/Not Resolved]
  - Hypotension [None]
  - Hyperhidrosis [Not Recovered/Not Resolved]
  - Feeling cold [None]

NARRATIVE: CASE EVENT DATE: 20201123
